FAERS Safety Report 24926770 (Version 1)
Quarter: 2025Q1

REPORT INFORMATION
  Report Type: Spontaneous
  Country: US (occurrence: US)
  Receive Date: 20250205
  Receipt Date: 20250205
  Transmission Date: 20250408
  Serious: No
  Sender: ABBVIE
  Company Number: US-ABBVIE-6110328

PATIENT
  Sex: Female

DRUGS (2)
  1. RINVOQ [Suspect]
     Active Substance: UPADACITINIB
     Indication: Product used for unknown indication
     Route: 048
  2. XELJANZ XR [Suspect]
     Active Substance: TOFACITINIB CITRATE
     Indication: Product used for unknown indication
     Route: 065

REACTIONS (3)
  - Inflammation [Unknown]
  - Drug ineffective [Unknown]
  - Dementia [Unknown]
